FAERS Safety Report 20874121 (Version 1)
Quarter: 2022Q2

REPORT INFORMATION
  Report Type: Spontaneous
  Country: JP (occurrence: JP)
  Receive Date: 20220525
  Receipt Date: 20220525
  Transmission Date: 20220721
  Serious: Yes (Other)
  Sender: FDA-Public Use
  Company Number: JP-JNJFOC-20220550129

PATIENT
  Age: 82 Year

DRUGS (1)
  1. RISPERDAL [Suspect]
     Active Substance: RISPERIDONE
     Indication: Product used for unknown indication
     Dosage: IN THE MORNING
     Route: 048

REACTIONS (3)
  - Renal impairment [Unknown]
  - Inappropriate schedule of product administration [Unknown]
  - Off label use [Unknown]
